FAERS Safety Report 13224688 (Version 1)
Quarter: 2017Q1

REPORT INFORMATION
  Report Type: Report from Study
  Country: None (occurrence: DE)
  Receive Date: 20170213
  Receipt Date: 20170213
  Transmission Date: 20170428
  Serious: Yes (Hospitalization)
  Sender: FDA-Public Use
  Company Number: DE-ABBVIE-17K-062-1864984-00

PATIENT
  Age: 70 Year
  Sex: Female

DRUGS (4)
  1. HUMIRA [Suspect]
     Active Substance: ADALIMUMAB
     Indication: PRODUCT USED FOR UNKNOWN INDICATION
     Route: 058
     Dates: start: 200401, end: 201002
  2. MTX [Concomitant]
     Active Substance: METHOTREXATE SODIUM
  3. MABTHERA [Concomitant]
     Active Substance: RITUXIMAB
     Indication: PRODUCT USED FOR UNKNOWN INDICATION
  4. MTX [Concomitant]
     Active Substance: METHOTREXATE SODIUM
     Indication: PRODUCT USED FOR UNKNOWN INDICATION
     Dates: start: 200401, end: 200908

REACTIONS (9)
  - Psoriasis [Unknown]
  - Disturbance in attention [Recovered/Resolved]
  - Headache [Recovered/Resolved]
  - Aura [Recovered/Resolved]
  - Transient ischaemic attack [Unknown]
  - Enuresis [Recovered/Resolved]
  - Partial seizures [Recovered/Resolved]
  - Migraine [Recovered/Resolved]
  - Hypertension [Recovered/Resolved]

NARRATIVE: CASE EVENT DATE: 20151110
